FAERS Safety Report 6385984-7 (Version None)
Quarter: 2009Q4

REPORT INFORMATION
  Report Type: 
  Country: None (occurrence: None)
  Receive Date: 20091002
  Receipt Date: 20081030
  Transmission Date: 20100525
  Serious: No
  Sender: FDA-Public Use
  Company Number: US-ASTRAZENECA-2008UW24376

PATIENT
  Age: 82 Year
  Sex: Female

DRUGS (6)
  1. ARIMIDEX [Suspect]
     Route: 048
     Dates: start: 20040101
  2. LIPITOR [Concomitant]
  3. ACTONEL [Concomitant]
  4. LISINOPRIL [Concomitant]
  5. CALCIUM [Concomitant]
  6. MULTI-VITAMINS [Concomitant]

REACTIONS (2)
  - ALOPECIA [None]
  - RESORPTION BONE INCREASED [None]
